FAERS Safety Report 11556702 (Version 2)
Quarter: 2015Q4

REPORT INFORMATION
  Report Type: Spontaneous
  Country: US (occurrence: US)
  Receive Date: 20150925
  Receipt Date: 20151012
  Transmission Date: 20160304
  Serious: Yes (Hospitalization)
  Sender: FDA-Public Use
  Company Number: US-ACTELION-A-NJ2015-124335

PATIENT
  Age: 46 Year
  Sex: Female

DRUGS (1)
  1. OPSUMIT [Suspect]
     Active Substance: MACITENTAN
     Indication: PULMONARY ARTERIAL HYPERTENSION
     Dosage: 10 MG, QD
     Route: 048
     Dates: start: 20150806

REACTIONS (6)
  - Nasopharyngitis [Unknown]
  - Influenza [Unknown]
  - Upper respiratory tract infection [Recovering/Resolving]
  - Transient ischaemic attack [Unknown]
  - Nasal congestion [Unknown]
  - Respiratory tract congestion [Unknown]
